FAERS Safety Report 10517893 (Version 4)
Quarter: 2015Q1

REPORT INFORMATION
  Report Type: Spontaneous
  Country: US (occurrence: US)
  Receive Date: 20141015
  Receipt Date: 20150130
  Transmission Date: 20150720
  Serious: Yes (Hospitalization, Other)
  Sender: FDA-Public Use
  Company Number: US-UNITED THERAPEUTICS-UNT-2014-008301

PATIENT
  Age: 87 Year
  Sex: Female
  Weight: 86.17 kg

DRUGS (4)
  1. TRACLEER [Concomitant]
     Active Substance: BOSENTAN\BOSENTAN MONOHYDRATE
     Indication: PRODUCT USED FOR UNKNOWN INDICATION
  2. TYVASO [Suspect]
     Active Substance: TREPROSTINIL
     Dosage: 6-54 ?G, QID
     Dates: start: 20140905
  3. TYVASO [Suspect]
     Active Substance: TREPROSTINIL
     Indication: PULMONARY ARTERIAL HYPERTENSION
     Dosage: 18-54 MICROGRAMS, QID
     Dates: start: 20140905, end: 20140915
  4. REVATIO [Concomitant]
     Active Substance: SILDENAFIL CITRATE
     Indication: PRODUCT USED FOR UNKNOWN INDICATION

REACTIONS (10)
  - Dyspnoea [Recovering/Resolving]
  - Pulmonary arterial hypertension [Unknown]
  - Oedema peripheral [Unknown]
  - Malaise [Unknown]
  - Gout [Unknown]
  - Cardiac failure congestive [Recovering/Resolving]
  - Lung infiltration [Unknown]
  - Pleural effusion [Unknown]
  - Fluid retention [Recovering/Resolving]
  - Sepsis [Unknown]

NARRATIVE: CASE EVENT DATE: 2014
